FAERS Safety Report 14407125 (Version 1)
Quarter: 2018Q1

REPORT INFORMATION
  Report Type: Spontaneous
  Country: US (occurrence: US)
  Receive Date: 20180118
  Receipt Date: 20180118
  Transmission Date: 20180509
  Serious: Yes (Hospitalization)
  Sender: FDA-Public Use
  Company Number: US-MALLINCKRODT-T201800149

PATIENT
  Age: 8 Year
  Sex: Male
  Weight: 23 kg

DRUGS (1)
  1. METHYLPHENIDATE HYDROCHLORIDE EXTENDED RELEASE TABLETS [Suspect]
     Active Substance: METHYLPHENIDATE HYDROCHLORIDE
     Indication: PRODUCT USED FOR UNKNOWN INDICATION
     Dosage: UNK
     Route: 065

REACTIONS (14)
  - Agitation [Recovered/Resolved]
  - Polydipsia [Recovered/Resolved]
  - Vomiting [Recovered/Resolved]
  - Mental disorder [Recovered/Resolved]
  - Temperature regulation disorder [Recovered/Resolved]
  - Status epilepticus [Recovered/Resolved]
  - Flushing [Recovered/Resolved]
  - Overdose [Unknown]
  - Urinary incontinence [Recovered/Resolved]
  - Hyperhidrosis [Recovered/Resolved]
  - Hyponatraemia [Recovered/Resolved]
  - Anal incontinence [Recovered/Resolved]
  - Medication error [Unknown]
  - Aggression [Recovered/Resolved]
